FAERS Safety Report 4286812-6 (Version None)
Quarter: 2004Q1

REPORT INFORMATION
  Report Type: 
  Country: None (occurrence: None)
  Receive Date: 20040206
  Receipt Date: 20040116
  Transmission Date: 20041129
  Serious: Yes (Life-Threatening, Hospitalization, Disabling)
  Sender: FDA-Public Use
  Company Number: US-ROCHE-356422

PATIENT
  Age: 67 Year
  Sex: Female
  Weight: 83.6 kg

DRUGS (1)
  1. XENICAL [Suspect]
     Indication: OBESITY
     Route: 048
     Dates: start: 20030226, end: 20031228

REACTIONS (1)
  - SMALL INTESTINAL OBSTRUCTION [None]
